FAERS Safety Report 22039501 (Version 1)
Quarter: 2023Q1

REPORT INFORMATION
  Report Type: Spontaneous
  Country: US (occurrence: None)
  Receive Date: 20230224
  Receipt Date: 20230224
  Transmission Date: 20230418
  Serious: No
  Sender: FDA-Public Use
  Company Number: None

PATIENT
  Age: 31 Year
  Sex: Female
  Weight: 93.15 kg

DRUGS (8)
  1. VYVANSE [Suspect]
     Active Substance: LISDEXAMFETAMINE DIMESYLATE
     Indication: Attention deficit hyperactivity disorder
     Dosage: OTHER QUANTITY : 1 CAPSULE(S);?
     Route: 048
     Dates: start: 20230211
  2. VYVANSE [Suspect]
     Active Substance: LISDEXAMFETAMINE DIMESYLATE
     Indication: Attention deficit hyperactivity disorder
     Dosage: OTHER QUANTITY : 1 CAPSULE(S);?FREQUENCY : EVERY DAY BEFORE NOON;?
     Route: 048
     Dates: start: 20220921, end: 20230210
  3. OZEMPIC [Concomitant]
     Active Substance: SEMAGLUTIDE
  4. NORTRIPTYLINE HYDROCHLORIDE [Concomitant]
     Active Substance: NORTRIPTYLINE HYDROCHLORIDE
  5. Drospirence-EE [Concomitant]
  6. CETIRIZINE HYDROCHLORIDE [Concomitant]
     Active Substance: CETIRIZINE HYDROCHLORIDE
  7. MAGNESIUM CITRATE [Concomitant]
     Active Substance: MAGNESIUM CITRATE
  8. One A Way Women^s Complete Multivitamin [Concomitant]

REACTIONS (6)
  - Insurance issue [None]
  - Inability to afford medication [None]
  - Therapy change [None]
  - Disturbance in attention [None]
  - Anxiety [None]
  - Impaired work ability [None]

NARRATIVE: CASE EVENT DATE: 20221228
